FAERS Safety Report 14226631 (Version 13)
Quarter: 2020Q1

REPORT INFORMATION
  Report Type: Spontaneous
  Country: CA (occurrence: CA)
  Receive Date: 20171127
  Receipt Date: 20200310
  Transmission Date: 20200409
  Serious: Yes (Other)
  Sender: FDA-Public Use
  Company Number: CA-PFIZER INC-2017504870

PATIENT
  Age: 43 Year
  Sex: Male

DRUGS (5)
  1. PANTOPRAZOLE [Suspect]
     Active Substance: PANTOPRAZOLE
     Dosage: 40 MILLIGRAM
     Route: 065
  2. APO-METHOTREXATE [Suspect]
     Active Substance: METHOTREXATE
     Dosage: 2.5 MG, UNK (UNKNOWN FREQUENCY)
     Route: 048
  3. PANTOPRAZOLE [Suspect]
     Active Substance: PANTOPRAZOLE
     Dosage: 40 MG, UNK
     Route: 065
  4. METHOTREXATE SODIUM. [Suspect]
     Active Substance: METHOTREXATE SODIUM
     Dosage: 10 MG, UNK
     Route: 048
  5. EURO FOLIC [Suspect]
     Active Substance: FOLIC ACID
     Dosage: 5 MG, UNK (UNKNOWN FREQUENCY)
     Route: 048

REACTIONS (9)
  - Crohn^s disease [Not Recovered/Not Resolved]
  - Diabetes mellitus [Not Recovered/Not Resolved]
  - Hypertension [Not Recovered/Not Resolved]
  - Pharyngitis [Not Recovered/Not Resolved]
  - Diarrhoea [Unknown]
  - Haematochezia [Unknown]
  - Obesity [Not Recovered/Not Resolved]
  - Abdominal pain [Unknown]
  - Gastric haemorrhage [Unknown]

NARRATIVE: CASE EVENT DATE: 2017
